FAERS Safety Report 5827770-X (Version None)
Quarter: 2008Q3

REPORT INFORMATION
  Report Type: 
  Country: None (occurrence: None)
  Receive Date: 20080728
  Receipt Date: 20080708
  Transmission Date: 20090109
  Serious: Yes (Other)
  Sender: FDA-Public Use
  Company Number: CHNY2008JP02675

PATIENT
  Age: 60 Year
  Sex: Male

DRUGS (1)
  1. NICOTINELL TTS (NCH) (NICOTINE) TRANS-THERAPEUTIC-SYSTEM [Suspect]
     Indication: SMOKING CESSATION THERAPY
     Dosage: 14 MG, QD, TRANSDERMAL
     Route: 062
     Dates: start: 20080601

REACTIONS (5)
  - APPLICATION SITE EROSION [None]
  - APPLICATION SITE SWELLING [None]
  - DERMATITIS ALLERGIC [None]
  - DRUG HYPERSENSITIVITY [None]
  - SKIN DISCOLOURATION [None]
